FAERS Safety Report 21295082 (Version 1)
Quarter: 2022Q3

REPORT INFORMATION
  Report Type: Spontaneous
  Country: BR (occurrence: BR)
  Receive Date: 20220905
  Receipt Date: 20220905
  Transmission Date: 20221027
  Serious: Yes (Hospitalization, Other)
  Sender: FDA-Public Use
  Company Number: BR-GLAXOSMITHKLINE-BR2022AMR125390

PATIENT

DRUGS (9)
  1. SERETIDE [Suspect]
     Active Substance: FLUTICASONE PROPIONATE\SALMETEROL XINAFOATE
     Indication: Asthma
     Dosage: UNK, QID
     Dates: start: 202204, end: 202207
  2. SERETIDE [Suspect]
     Active Substance: FLUTICASONE PROPIONATE\SALMETEROL XINAFOATE
     Indication: Emphysema
  3. SERETIDE [Suspect]
     Active Substance: FLUTICASONE PROPIONATE\SALMETEROL XINAFOATE
     Indication: Asthma
     Dosage: UNK, QID , 4X PER DAY, 2X IN THE MORNING AND 2X IN THE NIGHT
     Dates: start: 202207
  4. SERETIDE [Suspect]
     Active Substance: FLUTICASONE PROPIONATE\SALMETEROL XINAFOATE
     Indication: Emphysema
  5. NYSTATIN [Suspect]
     Active Substance: NYSTATIN
     Indication: Product used for unknown indication
     Dosage: UNK, QID , EVERY 6 HOURS GLASS OF 5 ML
  6. LISTERINE ORIGINAL [Suspect]
     Active Substance: EUCALYPTOL\MENTHOL\METHYL SALICYLATE\THYMOL
     Indication: Product used for unknown indication
     Dosage: UNK
  7. BECLOMETHASONE DIPROPIONATE [Suspect]
     Active Substance: BECLOMETHASONE DIPROPIONATE
     Indication: Product used for unknown indication
     Dosage: UNK , (250 MG)
  8. DIETARY SUPPLEMENT [Suspect]
     Active Substance: DIETARY SUPPLEMENT
     Indication: Product used for unknown indication
     Dosage: UNK, TID , EVERY 8 HOURS
  9. AMITRIPTYLINE [Suspect]
     Active Substance: AMITRIPTYLINE
     Indication: Sleep disorder
     Dosage: UNK

REACTIONS (33)
  - Liver disorder [Unknown]
  - Renal disorder [Unknown]
  - Pancreatic disorder [Unknown]
  - Spleen disorder [Unknown]
  - Crohn^s disease [Unknown]
  - Burn oral cavity [Unknown]
  - Tongue injury [Unknown]
  - Dyspnoea [Not Recovered/Not Resolved]
  - Fatigue [Not Recovered/Not Resolved]
  - Oral candidiasis [Recovered/Resolved]
  - Tongue discolouration [Unknown]
  - Tongue erythema [Unknown]
  - Glossodynia [Unknown]
  - Sight disability [Unknown]
  - Disturbance in attention [Unknown]
  - Headache [Unknown]
  - Insomnia [Unknown]
  - Dysphonia [Unknown]
  - Tremor [Unknown]
  - Sinusitis [Unknown]
  - Influenza [Unknown]
  - Vomiting [Unknown]
  - Gastrointestinal disorder [Unknown]
  - Renal disorder [Unknown]
  - Depression [Unknown]
  - Panic disorder [Unknown]
  - Hernia [Unknown]
  - Gastric disorder [Unknown]
  - Weight decreased [Unknown]
  - Condition aggravated [Unknown]
  - Drug ineffective [Unknown]
  - Treatment noncompliance [Unknown]
  - Extra dose administered [Unknown]

NARRATIVE: CASE EVENT DATE: 20220401
